FAERS Safety Report 16219049 (Version 2)
Quarter: 2019Q2

REPORT INFORMATION
  Report Type: Spontaneous
  Country: US (occurrence: US)
  Receive Date: 20190419
  Receipt Date: 20190523
  Transmission Date: 20190711
  Serious: No
  Sender: FDA-Public Use
  Company Number: US-PFIZER INC-2019165107

PATIENT
  Age: 60 Year
  Sex: Female

DRUGS (1)
  1. CELECOXIB. [Suspect]
     Active Substance: CELECOXIB
     Indication: PSORIATIC ARTHROPATHY
     Dosage: 200 MG, 2X/DAY (WITH FOOD TWICE A DAY 90 DAYS)
     Route: 048

REACTIONS (5)
  - Off label use [Unknown]
  - Accident at work [Unknown]
  - Pain in extremity [Unknown]
  - Product use in unapproved indication [Unknown]
  - Impaired work ability [Unknown]

NARRATIVE: CASE EVENT DATE: 20181010
